FAERS Safety Report 21666305 (Version 2)
Quarter: 2024Q1

REPORT INFORMATION
  Report Type: Spontaneous
  Country: US (occurrence: US)
  Receive Date: 20221201
  Receipt Date: 20240112
  Transmission Date: 20240409
  Serious: No
  Sender: FDA-Public Use
  Company Number: US-GBT-015784

PATIENT
  Age: 53 Year
  Sex: Female

DRUGS (2)
  1. OXBRYTA [Suspect]
     Active Substance: VOXELOTOR
     Indication: Sickle cell disease
     Dosage: 1500 MG, 1X/DAY
     Route: 048
     Dates: start: 20220623
  2. OXBRYTA [Suspect]
     Active Substance: VOXELOTOR
     Dosage: TAKE 3 TABLETS BY MOUTH 1 TIME A DAY
     Route: 048
     Dates: start: 20230804

REACTIONS (2)
  - Hot flush [Unknown]
  - Product dose omission issue [Unknown]

NARRATIVE: CASE EVENT DATE: 20220101
